FAERS Safety Report 6813418-4 (Version None)
Quarter: 2010Q3

REPORT INFORMATION
  Report Type: 
  Country: None (occurrence: None)
  Receive Date: 20100701
  Receipt Date: 20100623
  Transmission Date: 20110219
  Serious: Yes (Hospitalization)
  Sender: FDA-Public Use
  Company Number: AT-PFIZER INC-2010078142

PATIENT
  Age: 26 Year
  Sex: Male
  Weight: 38 kg

DRUGS (3)
  1. CAMPTOSAR [Suspect]
     Indication: GASTRIC CANCER
     Dosage: 157.5 MG, EVERY 2 WEEKS
     Route: 042
     Dates: start: 20100607
  2. ELOXATIN [Suspect]
     Indication: GASTRIC CANCER
     Dosage: 107.1 MG, EVERY 2 WEEKS
     Route: 042
     Dates: start: 20100607
  3. LANSOPRAZOLE [Concomitant]
     Dosage: 15 MG, 1X/DAY
     Dates: start: 20080101

REACTIONS (1)
  - GASTROENTERITIS [None]
